FAERS Safety Report 18955653 (Version 1)
Quarter: 2021Q1

REPORT INFORMATION
  Report Type: Spontaneous
  Country: CN (occurrence: CN)
  Receive Date: 20210301
  Receipt Date: 20210301
  Transmission Date: 20210420
  Serious: Yes (Hospitalization)
  Sender: FDA-Public Use
  Company Number: CN-PFIZER INC-2021187319

PATIENT
  Age: 10 Year
  Sex: Female
  Weight: 55 kg

DRUGS (4)
  1. VINCRISTINE [Suspect]
     Active Substance: VINCRISTINE
     Indication: ANAPLASTIC LARGE-CELL LYMPHOMA
     Dosage: 2.000 MG, 1X/DAY
     Route: 042
     Dates: start: 20210205, end: 20210205
  2. CYTOSAR [Suspect]
     Active Substance: CYTARABINE
     Indication: ANAPLASTIC LARGE-CELL LYMPHOMA
     Dosage: 0.030 G, 1X/DAY
     Route: 037
     Dates: start: 20210205, end: 20210205
  3. DEXAMETHASONE SODIUM PHOSPHATE. [Suspect]
     Active Substance: DEXAMETHASONE SODIUM PHOSPHATE
     Indication: ANAPLASTIC LARGE-CELL LYMPHOMA
     Dosage: 4.000000 MG, 1X/DAY
     Route: 037
     Dates: start: 20210205, end: 20210205
  4. METHOTREXATE. [Suspect]
     Active Substance: METHOTREXATE
     Indication: ANAPLASTIC LARGE-CELL LYMPHOMA
     Dosage: 15.000 MG, 1X/DAY
     Route: 037
     Dates: start: 20210205, end: 20210205

REACTIONS (3)
  - Mouth haemorrhage [Recovering/Resolving]
  - Myelosuppression [Recovering/Resolving]
  - Platelet count decreased [Recovering/Resolving]

NARRATIVE: CASE EVENT DATE: 20210206
